FAERS Safety Report 10314634 (Version 2)
Quarter: 2014Q3

REPORT INFORMATION
  Report Type: Spontaneous
  Country: US (occurrence: None)
  Receive Date: 20140717
  Receipt Date: 20140828
  Transmission Date: 20150326
  Serious: Yes (Hospitalization)
  Sender: FDA-Public Use
  Company Number: UNT-2014-003679

PATIENT
  Age: 27 Year
  Sex: Male
  Weight: 83.9 kg

DRUGS (3)
  1. REVATIO (SILDENAFIL CITRATE) [Concomitant]
  2. REMODULIN [Suspect]
     Active Substance: TREPROSTINIL
     Indication: COR PULMONALE CHRONIC
     Route: 058
     Dates: start: 20100728
  3. COUMADIN /00014802/ (WARFARIN SODIUM) [Concomitant]

REACTIONS (3)
  - Dyspnoea [None]
  - Palpitations [None]
  - Pulmonary hypertension [None]

NARRATIVE: CASE EVENT DATE: 20140705
